FAERS Safety Report 25644539 (Version 1)
Quarter: 2025Q3

REPORT INFORMATION
  Report Type: Spontaneous
  Country: US (occurrence: US)
  Receive Date: 20250805
  Receipt Date: 20250805
  Transmission Date: 20251020
  Serious: No
  Sender: MERCK SHARP & DOHME LLC
  Company Number: US-009507513-2310040

PATIENT
  Age: 63 Year
  Sex: Male

DRUGS (7)
  1. LETERMOVIR [Suspect]
     Active Substance: LETERMOVIR
     Indication: Prophylaxis
     Route: 048
  2. MYCOPHENOLIC ACID [Concomitant]
     Active Substance: MYCOPHENOLIC ACID
     Indication: Immunosuppression
  3. PREDNISONE [Concomitant]
     Active Substance: PREDNISONE
     Indication: Immunosuppression
  4. TACROLIMUS [Concomitant]
     Active Substance: TACROLIMUS
     Indication: Immunosuppression
  5. ACYCLOVIR [Concomitant]
     Active Substance: ACYCLOVIR
     Indication: Prophylaxis
  6. BACTRIM [Concomitant]
     Active Substance: SULFAMETHOXAZOLE\TRIMETHOPRIM
     Indication: Prophylaxis
  7. ITRACONAZOLE [Concomitant]
     Active Substance: ITRACONAZOLE
     Indication: Prophylaxis

REACTIONS (1)
  - Product use in unapproved indication [Unknown]
